FAERS Safety Report 6457105-3 (Version None)
Quarter: 2009Q4

REPORT INFORMATION
  Report Type: 
  Country: None (occurrence: None)
  Receive Date: 20091125
  Receipt Date: 20091116
  Transmission Date: 20100525
  Serious: Yes (Hospitalization)
  Sender: FDA-Public Use
  Company Number: B0599653A

PATIENT
  Sex: Female

DRUGS (16)
  1. LAMICTAL [Suspect]
     Indication: BIPOLAR DISORDER
     Dosage: 25MG PER DAY
     Route: 048
  2. SEREVENT [Concomitant]
     Indication: ASTHMA
     Route: 055
  3. DEPAKENE [Concomitant]
     Indication: MOOD SWINGS
     Dosage: 1200MG PER DAY
     Route: 048
     Dates: start: 20090315
  4. LIMAS [Concomitant]
     Indication: MOOD SWINGS
     Dosage: 800MG PER DAY
     Route: 048
     Dates: start: 20090821
  5. SEROQUEL [Concomitant]
     Indication: SLEEP DISORDER
     Dosage: 100MG PER DAY
     Route: 048
  6. RESLIN [Concomitant]
     Indication: SLEEP DISORDER
     Dosage: 100MG PER DAY
     Route: 048
     Dates: start: 20090424
  7. CONTOMIN [Concomitant]
     Indication: SEDATION
     Route: 048
     Dates: start: 20090315
  8. LEXOTAN [Concomitant]
     Indication: SEDATION
     Route: 048
  9. PREDONINE [Concomitant]
     Indication: ASTHMA
     Dosage: 5MG PER DAY
     Route: 065
  10. FLUNITRAZEPAM [Concomitant]
     Dosage: 2MG PER DAY
     Route: 048
  11. SENNOSIDE [Concomitant]
     Dosage: 24MG PER DAY
     Route: 048
  12. KIPRES [Concomitant]
     Dosage: 10MG PER DAY
     Route: 048
  13. PARIET [Concomitant]
     Dosage: 10MG PER DAY
     Route: 048
  14. UNKNOWN [Concomitant]
     Route: 048
  15. ALLEGRA [Concomitant]
     Route: 065
  16. PL [Concomitant]
     Route: 065

REACTIONS (7)
  - AGITATION [None]
  - ERYTHEMA [None]
  - PSYCHIATRIC SYMPTOM [None]
  - PYREXIA [None]
  - RASH [None]
  - RESTLESSNESS [None]
  - STEVENS-JOHNSON SYNDROME [None]
